FAERS Safety Report 25377113 (Version 1)
Quarter: 2025Q2

REPORT INFORMATION
  Report Type: Spontaneous
  Country: US (occurrence: US)
  Receive Date: 20250530
  Receipt Date: 20250530
  Transmission Date: 20250716
  Serious: Yes (Other)
  Sender: UCB
  Company Number: US-UCBSA-2025031728

PATIENT
  Age: 28 Year
  Sex: Female

DRUGS (3)
  1. LACOSAMIDE [Suspect]
     Active Substance: LACOSAMIDE
     Indication: Seizure
     Dosage: 300 MILLIGRAM, 2X/DAY (BID)
  2. CLOBAZAM [Suspect]
     Active Substance: CLOBAZAM
     Indication: Seizure
     Dosage: 30 MILLIGRAM, 2X/DAY (BID) (10 MG IN THE MORNING AND 20 MG AT NIGHT)
  3. CANNABIDIOL [Suspect]
     Active Substance: CANNABIDIOL
     Indication: Seizure
     Dosage: 82 MILLIGRAM, 2X/DAY (BID)

REACTIONS (5)
  - Generalised tonic-clonic seizure [Unknown]
  - Choking [Unknown]
  - Poor quality sleep [Unknown]
  - Wheezing [Unknown]
  - Overdose [Unknown]
